FAERS Safety Report 18570390 (Version 1)
Quarter: 2020Q4

REPORT INFORMATION
  Report Type: Report from Study
  Country: ES (occurrence: ES)
  Receive Date: 20201202
  Receipt Date: 20201202
  Transmission Date: 20210114
  Serious: Yes (Hospitalization)
  Sender: FDA-Public Use
  Company Number: ES-GW PHARMA-201605ESGW0269

PATIENT

DRUGS (8)
  1. SINGULAIR [Concomitant]
     Active Substance: MONTELUKAST SODIUM
     Indication: BRONCHIAL HYPERREACTIVITY
     Dosage: 100 MILLIGRAM, QD 3 MONTHS A YEAR
     Dates: start: 2013
  2. FYCOMPA [Concomitant]
     Active Substance: PERAMPANEL
     Indication: LENNOX-GASTAUT SYNDROME
     Dosage: 10 MILLIGRAM, QD
     Route: 048
     Dates: start: 20150406
  3. VIMPAT [Concomitant]
     Active Substance: LACOSAMIDE
     Indication: LENNOX-GASTAUT SYNDROME
     Dosage: 100MGAM, 150MGPM
     Route: 048
     Dates: start: 20150928
  4. EPIDIOLEX [Suspect]
     Active Substance: CANNABIDIOL
     Indication: LENNOX-GASTAUT SYNDROME
     Dosage: 600 MILLIGRAM, QD
     Route: 048
     Dates: start: 20160415, end: 20160514
  5. NIOAFREN [Concomitant]
     Dosage: 10 MILLIGRAM, BID
     Route: 048
     Dates: start: 20160428
  6. DIAZEPAM. [Concomitant]
     Active Substance: DIAZEPAM
     Indication: SEIZURE
     Dosage: UNKNOWN, PRN
     Route: 054
  7. NIOAFREN [Concomitant]
     Indication: LENNOX-GASTAUT SYNDROME
     Dosage: 15 MILLIGRAM, BID
     Route: 048
     Dates: start: 20031218, end: 20160428
  8. DEPAKINE [Concomitant]
     Active Substance: VALPROATE SODIUM
     Indication: LENNOX-GASTAUT SYNDROME
     Dosage: 600 MILLIGRAM, BID
     Route: 048
     Dates: start: 20030701

REACTIONS (1)
  - Pneumonia aspiration [Recovered/Resolved]

NARRATIVE: CASE EVENT DATE: 20160514
